FAERS Safety Report 16110000 (Version 1)
Quarter: 2019Q1

REPORT INFORMATION
  Report Type: Spontaneous
  Country: IL (occurrence: IL)
  Receive Date: 20190325
  Receipt Date: 20190325
  Transmission Date: 20190418
  Serious: Yes (Other)
  Sender: FDA-Public Use
  Company Number: IL-ASTELLAS-2019US011818

PATIENT
  Age: 16 Year
  Sex: Male
  Weight: 55 kg

DRUGS (25)
  1. PROGRAF [Suspect]
     Active Substance: TACROLIMUS\TACROLIMUS ANHYDROUS
     Dosage: 1 + 0.5 MG, ONCE DAILY
     Route: 065
     Dates: start: 20180209
  2. PROGRAF [Suspect]
     Active Substance: TACROLIMUS\TACROLIMUS ANHYDROUS
     Route: 065
     Dates: start: 20180624
  3. FEXOFENADINE [Concomitant]
     Active Substance: FEXOFENADINE\FEXOFENADINE HYDROCHLORIDE
     Indication: ANGIOEDEMA
     Route: 048
  4. PROGRAF [Suspect]
     Active Substance: TACROLIMUS\TACROLIMUS ANHYDROUS
     Dosage: 0.5 MG, TWICE DAILY
     Route: 065
  5. PROGRAF [Suspect]
     Active Substance: TACROLIMUS\TACROLIMUS ANHYDROUS
     Dosage: 0.5 MG + 1 MG, ONCE DAILY
     Route: 065
     Dates: start: 20190306
  6. PROGRAF [Suspect]
     Active Substance: TACROLIMUS\TACROLIMUS ANHYDROUS
     Route: 065
     Dates: start: 20140619
  7. CELLCEPT [Concomitant]
     Active Substance: MYCOPHENOLATE MOFETIL\MYCOPHENOLATE MOFETIL HYDROCHLORIDE
     Route: 065
     Dates: start: 20140619
  8. URSOLIT [Concomitant]
     Route: 065
     Dates: start: 20141106
  9. PROGRAF [Suspect]
     Active Substance: TACROLIMUS\TACROLIMUS ANHYDROUS
     Dosage: 0.5 MG+ 0.5/1MG, UNKNOWN FREQ.
     Route: 065
     Dates: start: 20150531
  10. URSOLIT [Concomitant]
     Indication: LIVER TRANSPLANT
     Dosage: 200+300 MG, UNKNOWN FREQ.
     Route: 065
  11. PROGRAF [Suspect]
     Active Substance: TACROLIMUS\TACROLIMUS ANHYDROUS
     Dosage: 1 MG+ 0.5 MG, ONCE DAILY
     Route: 065
  12. PROGRAF [Suspect]
     Active Substance: TACROLIMUS\TACROLIMUS ANHYDROUS
     Route: 065
     Dates: start: 20160626
  13. PROGRAF [Suspect]
     Active Substance: TACROLIMUS\TACROLIMUS ANHYDROUS
     Route: 065
     Dates: start: 20170406
  14. PROGRAF [Suspect]
     Active Substance: TACROLIMUS\TACROLIMUS ANHYDROUS
     Dosage: 1 + 0.5 MG, ONCE DAILY
     Route: 065
     Dates: start: 20170817
  15. CELLCEPT [Concomitant]
     Active Substance: MYCOPHENOLATE MOFETIL\MYCOPHENOLATE MOFETIL HYDROCHLORIDE
     Indication: LIVER TRANSPLANT
     Dosage: 500 MG, TWICE DAILY (IN DECREASE)
     Route: 065
  16. PROGRAF [Suspect]
     Active Substance: TACROLIMUS\TACROLIMUS ANHYDROUS
     Route: 065
     Dates: start: 20141106
  17. PROGRAF [Suspect]
     Active Substance: TACROLIMUS\TACROLIMUS ANHYDROUS
     Route: 065
     Dates: start: 20161103
  18. CELLCEPT [Concomitant]
     Active Substance: MYCOPHENOLATE MOFETIL\MYCOPHENOLATE MOFETIL HYDROCHLORIDE
     Route: 065
     Dates: start: 20141106
  19. CELLCEPT [Concomitant]
     Active Substance: MYCOPHENOLATE MOFETIL\MYCOPHENOLATE MOFETIL HYDROCHLORIDE
     Dosage: UNK, UNKNOWN FREQ.
     Dates: start: 20150531
  20. URSOLIT [Concomitant]
     Route: 065
     Dates: start: 20140619
  21. URSOLIT [Concomitant]
     Route: 065
     Dates: start: 20150531
  22. PROGRAF [Suspect]
     Active Substance: TACROLIMUS\TACROLIMUS ANHYDROUS
     Indication: LIVER TRANSPLANT
     Dosage: UNK UNK, UNKNOWN FREQ.
     Route: 065
  23. PROGRAF [Suspect]
     Active Substance: TACROLIMUS\TACROLIMUS ANHYDROUS
     Route: 065
     Dates: start: 20150827
  24. PROGRAF [Suspect]
     Active Substance: TACROLIMUS\TACROLIMUS ANHYDROUS
     Dosage: 1.5 MG, (1 + 0.5 MG) ONCE DAILY
     Route: 065
     Dates: start: 20190123
  25. HEPATITIS A VACCINE [Concomitant]
     Active Substance: HEPATITIS A VIRUS STRAIN HM175 ANTIGEN (FORMALDEHYDE INACTIVATED)
     Indication: PRODUCT USED FOR UNKNOWN INDICATION
     Dosage: UNK UNK, UNKNOWN FREQ.
     Route: 065
     Dates: start: 20150315

REACTIONS (40)
  - Angioedema [Unknown]
  - Hypersensitivity [Unknown]
  - Drug level fluctuating [Unknown]
  - Pharyngitis streptococcal [Unknown]
  - Oropharyngeal pain [Recovering/Resolving]
  - Gastrointestinal viral infection [Unknown]
  - Headache [Unknown]
  - Swelling [Unknown]
  - Abdominal pain [Unknown]
  - Headache [Unknown]
  - Nausea [Unknown]
  - Diarrhoea [Unknown]
  - Glomerular filtration rate decreased [Unknown]
  - Pharyngitis [Unknown]
  - Asthenia [Unknown]
  - Muscle spasms [Unknown]
  - Nephrolithiasis [Unknown]
  - Swollen tongue [Unknown]
  - Lip swelling [Unknown]
  - Kidney small [Unknown]
  - Abdominal pain [Recovering/Resolving]
  - Drug level fluctuating [Unknown]
  - Abdominal pain [Unknown]
  - Dysphonia [Unknown]
  - Dyspnoea [Unknown]
  - Dermatitis allergic [Unknown]
  - Viral infection [Unknown]
  - Herpes virus infection [Unknown]
  - Pyrexia [Unknown]
  - Headache [Recovering/Resolving]
  - Constipation [Unknown]
  - Cough [Unknown]
  - Pharyngitis streptococcal [Unknown]
  - Hepatitis [Unknown]
  - Pharyngitis streptococcal [Unknown]
  - Abdominal pain [Unknown]
  - Diarrhoea [Recovered/Resolved]
  - Lip swelling [Unknown]
  - Splenomegaly [Unknown]
  - Abdominal discomfort [Unknown]

NARRATIVE: CASE EVENT DATE: 201406
